FAERS Safety Report 18303576 (Version 1)
Quarter: 2020Q3

REPORT INFORMATION
  Report Type: Spontaneous
  Country: US (occurrence: US)
  Receive Date: 20200923
  Receipt Date: 20200923
  Transmission Date: 20201103
  Serious: Yes (Death)
  Sender: FDA-Public Use
  Company Number: US-JACOBUS PHARMACEUTICAL COMPANY, INC.-2091076

PATIENT
  Age: 65 Year
  Sex: Male

DRUGS (9)
  1. MULTIVITAMIN [Concomitant]
     Active Substance: VITAMINS
  2. PRILOSEC [Concomitant]
     Active Substance: OMEPRAZOLE MAGNESIUM
  3. HYDROCODONE [Concomitant]
     Active Substance: HYDROCODONE
  4. ELIQUIS [Concomitant]
     Active Substance: APIXABAN
  5. FLONASE [Concomitant]
     Active Substance: FLUTICASONE PROPIONATE
  6. RUZURGI [Suspect]
     Active Substance: AMIFAMPRIDINE
     Indication: MYASTHENIC SYNDROME
     Route: 048
     Dates: start: 20200625
  7. PROBIOTIC [Concomitant]
     Active Substance: PROBIOTICS NOS
  8. GAMMAGARD [Concomitant]
     Active Substance: HUMAN IMMUNOGLOBULIN G
  9. MESTINON [Concomitant]
     Active Substance: PYRIDOSTIGMINE BROMIDE

REACTIONS (1)
  - Death [Fatal]
